FAERS Safety Report 16809509 (Version 1)
Quarter: 2019Q4

REPORT INFORMATION
  Report Type: Spontaneous
  Country: US (occurrence: US)
  Receive Date: 20190915
  Receipt Date: 20190915
  Transmission Date: 20200122
  Serious: Yes (Disabling)
  Sender: FDA-Public Use
  Company Number: None

PATIENT
  Age: 59 Year
  Sex: Female
  Weight: 86.85 kg

DRUGS (13)
  1. SODIUM FLUORIDE. [Concomitant]
     Active Substance: SODIUM FLUORIDE
  2. ASPIRIN LOW DOSE [Concomitant]
     Active Substance: ASPIRIN
  3. CLONAZEPAM. [Concomitant]
     Active Substance: CLONAZEPAM
  4. TRAVATAN Z EYE DROPS [Concomitant]
  5. AMOXICILLIAN [Concomitant]
     Active Substance: AMOXICILLIN
  6. NAPROXEN. [Concomitant]
     Active Substance: NAPROXEN
  7. CALCIUM WITH VITAMIN D3 [Concomitant]
     Active Substance: CALCIUM CARBONATE\CHOLECALCIFEROL
  8. TOLTERODINE [Concomitant]
     Active Substance: TOLTERODINE
  9. ADDERALL [Concomitant]
     Active Substance: AMPHETAMINE ASPARTATE\AMPHETAMINE SULFATE\DEXTROAMPHETAMINE SACCHARATE\DEXTROAMPHETAMINE SULFATE
  10. FLUOXETINE [Concomitant]
     Active Substance: FLUOXETINE HYDROCHLORIDE
  11. VITAMIN B COMPLEX [Concomitant]
     Active Substance: CYANOCOBALAMIN\DEXPANTHENOL\NIACINAMIDE\PYRIDOXINE HYDROCHLORIDE\RIBOFLAVIN 5^-PHOSPHATE SODIUM\THIAMINE HYDROCHLORIDE\VITAMIN B COMPLEX
  12. MECLIZINE [Concomitant]
     Active Substance: MECLIZINE HYDROCHLORIDE
  13. AUBAGIO [Suspect]
     Active Substance: TERIFLUNOMIDE
     Indication: MULTIPLE SCLEROSIS
     Dosage: ?          QUANTITY:1 TABLET(S);?
     Route: 048
     Dates: start: 20190723, end: 20190906

REACTIONS (6)
  - Diarrhoea [None]
  - Nausea [None]
  - Decreased appetite [None]
  - Headache [None]
  - Abdominal pain upper [None]
  - Multiple sclerosis [None]

NARRATIVE: CASE EVENT DATE: 20190728
